FAERS Safety Report 12891143 (Version 1)
Quarter: 2016Q4

REPORT INFORMATION
  Report Type: Spontaneous
  Country: US (occurrence: US)
  Receive Date: 20161027
  Receipt Date: 20161027
  Transmission Date: 20170207
  Serious: No
  Sender: FDA-Public Use
  Company Number: US-PRESTIGE BRANDS -1058992

PATIENT
  Age: 28 Year
  Sex: Female

DRUGS (1)
  1. URISTAT [Suspect]
     Active Substance: PHENAZOPYRIDINE HYDROCHLORIDE
     Indication: VULVOVAGINAL MYCOTIC INFECTION
     Route: 067
     Dates: start: 20151215, end: 20151215

REACTIONS (4)
  - Chromaturia [Not Recovered/Not Resolved]
  - Vulvovaginal burning sensation [Unknown]
  - Dysuria [Unknown]
  - Vaginal discharge [Unknown]

NARRATIVE: CASE EVENT DATE: 20151216
